FAERS Safety Report 21032308 (Version 11)
Quarter: 2023Q2

REPORT INFORMATION
  Report Type: Spontaneous
  Country: US (occurrence: US)
  Receive Date: 20220701
  Receipt Date: 20230425
  Transmission Date: 20230722
  Serious: Yes (Other)
  Sender: FDA-Public Use
  Company Number: US-PFIZER INC-202200596096

PATIENT
  Age: 65 Year
  Sex: Female
  Weight: 74.83 kg

DRUGS (1)
  1. ESTRING [Suspect]
     Active Substance: ESTRADIOL
     Indication: Urinary tract infection
     Dosage: 1 DF, EVERY 3 MONTHS
     Dates: start: 202112

REACTIONS (5)
  - Pulmonary congestion [Unknown]
  - COVID-19 [Unknown]
  - Off label use [Unknown]
  - Drug effective for unapproved indication [Unknown]
  - Device difficult to use [Unknown]
